FAERS Safety Report 7878919-9 (Version None)
Quarter: 2011Q4

REPORT INFORMATION
  Report Type: 
  Country: None (occurrence: None)
  Receive Date: 20111021
  Receipt Date: 20110513
  Transmission Date: 20120403
  Serious: Yes (Death)
  Sender: FDA-Public Use
  Company Number: 2011SP022077

PATIENT
  Age: 56 Year
  Sex: Female

DRUGS (2)
  1. TEMODAR [Suspect]
     Indication: SMALL CELL LUNG CANCER STAGE UNSPECIFIED
     Dosage: 15 MG/M2; PO
     Route: 048
     Dates: start: 20110302, end: 20110404
  2. TEMODAR [Suspect]
     Indication: METASTASES TO CENTRAL NERVOUS SYSTEM
     Dosage: 15 MG/M2; PO
     Route: 048
     Dates: start: 20110302, end: 20110404

REACTIONS (1)
  - DISEASE PROGRESSION [None]
